FAERS Safety Report 19692532 (Version 1)
Quarter: 2021Q3

REPORT INFORMATION
  Report Type: Spontaneous
  Country: GB (occurrence: GB)
  Receive Date: 20210812
  Receipt Date: 20210812
  Transmission Date: 20211014
  Serious: Yes (Hospitalization, Other)
  Sender: FDA-Public Use
  Company Number: GB-PFIZER INC-202101005727

PATIENT
  Age: 90 Year
  Sex: Female

DRUGS (6)
  1. METHOTREXATE SODIUM. [Suspect]
     Active Substance: METHOTREXATE SODIUM
     Dosage: 20 MG, WEEKLY (EIGHT TABLETS TO BE TAKEN WEEKLY)
  2. SULFASALAZINE. [Suspect]
     Active Substance: SULFASALAZINE
     Dosage: 500 MG, 2X/DAY (ONE TO BE TAKEN TWICE A DAY)
  3. FOLIC ACID. [Concomitant]
     Active Substance: FOLIC ACID
     Dosage: 5 MG, ALTERNATE DAY (5 MG, ONE TABLET EVERY OTHER DAY)
  4. PARACETAMOL [Concomitant]
     Active Substance: ACETAMINOPHEN
     Dosage: 500 MG (ONE TO BE TAKEN EVERY 4?6 HOURS UP TO FOUR TIMES A DAY)
  5. BENDROFLUMETHIAZIDE [Concomitant]
     Active Substance: BENDROFLUMETHIAZIDE
     Dosage: 2.5 MG
  6. DOCUSATE [Concomitant]
     Active Substance: DOCUSATE
     Dosage: 100 MG (ONE TO TWO TO BE TAKEN TWICE A DAY AS REQUIRED CONSTIPATION)

REACTIONS (1)
  - Pancytopenia [Unknown]
